FAERS Safety Report 7408162-9 (Version None)
Quarter: 2011Q2

REPORT INFORMATION
  Report Type: 
  Country: None (occurrence: None)
  Receive Date: 20110412
  Receipt Date: 20110214
  Transmission Date: 20111010
  Serious: Yes (Other)
  Sender: FDA-Public Use
  Company Number: US-BAYER-2010-002749

PATIENT
  Sex: Female
  Weight: 72.562 kg

DRUGS (3)
  1. NEXIUM [Concomitant]
     Dosage: UNK
     Dates: start: 20070701
  2. CONTRACEPTIVES NOS [Concomitant]
  3. YAZ [Suspect]
     Dosage: UNK
     Route: 048
     Dates: start: 20060501, end: 20070701

REACTIONS (3)
  - CHOLELITHIASIS [None]
  - CHOLECYSTITIS [None]
  - GALLBLADDER DISORDER [None]
